FAERS Safety Report 9504111 (Version 5)
Quarter: 2014Q1

REPORT INFORMATION
  Report Type: Spontaneous
  Country: US (occurrence: US)
  Receive Date: 20130906
  Receipt Date: 20140226
  Transmission Date: 20141002
  Serious: Yes (Hospitalization, Disabling, Other)
  Sender: FDA-Public Use
  Company Number: US-009507513-1205USA01497

PATIENT
  Sex: Female
  Weight: 65.76 kg

DRUGS (6)
  1. FOSAMAX [Suspect]
     Indication: OSTEOPENIA
     Dosage: UNK
     Route: 048
     Dates: start: 1995, end: 2004
  2. FOSAMAX [Suspect]
     Indication: OSTEOPOROSIS
     Dosage: 70 MG, WEEKLY
     Route: 048
     Dates: end: 20110509
  3. FOSAMAX [Suspect]
     Dosage: 40 MG, 2 TABS WEEKLY
     Route: 048
  4. ALENDRONATE SODIUM [Suspect]
     Route: 048
  5. PROZAC [Concomitant]
     Dosage: 10 MG, QD
  6. PREMPRO [Concomitant]
     Dosage: DAILY

REACTIONS (18)
  - Femur fracture [Recovered/Resolved]
  - Open reduction of fracture [Unknown]
  - Fracture [Not Recovered/Not Resolved]
  - Stress fracture [Not Recovered/Not Resolved]
  - Low turnover osteopathy [Not Recovered/Not Resolved]
  - Osteoporosis [Not Recovered/Not Resolved]
  - Osteonecrosis of jaw [Not Recovered/Not Resolved]
  - Vitamin D decreased [Unknown]
  - Depression [Unknown]
  - Hysterectomy [Unknown]
  - Atrophic vulvovaginitis [Unknown]
  - Anxiety [Unknown]
  - Fatigue [Unknown]
  - Incorrect dose administered [Unknown]
  - Hypercholesterolaemia [Unknown]
  - Varicose vein [Unknown]
  - Arthritis [Unknown]
  - Gastritis [Unknown]
